FAERS Safety Report 10532877 (Version 3)
Quarter: 2014Q4

REPORT INFORMATION
  Report Type: Spontaneous
  Country: US (occurrence: US)
  Receive Date: 20141022
  Receipt Date: 20141105
  Transmission Date: 20150529
  Serious: Yes (Hospitalization, Other)
  Sender: FDA-Public Use
  Company Number: US-BEH-2014045611

PATIENT
  Sex: Male

DRUGS (2)
  1. ZEMAIRA [Suspect]
     Active Substance: .ALPHA.1-PROTEINASE INHIBITOR HUMAN
  2. ALL OTHER THERAPEUTIC PRODUCTS [Suspect]
     Active Substance: UNSPECIFIED INGREDIENT

REACTIONS (7)
  - Feeling abnormal [Unknown]
  - Aphasia [Unknown]
  - Blood pressure abnormal [Unknown]
  - Malaise [Unknown]
  - Biopsy oesophagus [Unknown]
  - Hernia repair [Unknown]
  - Pharyngeal disorder [Unknown]
